FAERS Safety Report 7217244-6 (Version None)
Quarter: 2011Q1

REPORT INFORMATION
  Report Type: 
  Country: None (occurrence: None)
  Receive Date: 20110110
  Receipt Date: 20110103
  Transmission Date: 20110831
  Serious: Yes (Hospitalization)
  Sender: FDA-Public Use
  Company Number: GB-KINGPHARMUSA00001-K201100020

PATIENT
  Age: 41 Year
  Sex: Female

DRUGS (6)
  1. MONTELUKAST JUNIOR [Concomitant]
  2. EPIPEN [Suspect]
     Indication: ASTHMA
     Dosage: 0.5 MG, SINGLE
     Route: 030
  3. OXYGEN [Concomitant]
     Indication: ASTHMA
  4. IPRATROPIUM BROMIDE [Concomitant]
     Indication: ASTHMA
  5. SALBUTAMOL [Concomitant]
     Indication: ASTHMA
  6. SYMBICORT [Concomitant]
     Dosage: 100/6

REACTIONS (1)
  - LEUKOCYTOSIS [None]
